FAERS Safety Report 8165276-6 (Version None)
Quarter: 2012Q1

REPORT INFORMATION
  Report Type: 
  Country: None (occurrence: None)
  Receive Date: 20120223
  Receipt Date: 20120223
  Transmission Date: 20120608
  Serious: Yes (Other)
  Sender: FDA-Public Use
  Company Number: None

PATIENT
  Age: 24 Year
  Sex: Male
  Weight: 85 kg

DRUGS (1)
  1. ERWINIA [Suspect]
     Dosage: 50,000 UNITS M/W/F  IM
     Route: 030
     Dates: start: 20110902, end: 20120117

REACTIONS (1)
  - URTICARIA [None]
